FAERS Safety Report 9462423 (Version 1)
Quarter: 2013Q3

REPORT INFORMATION
  Report Type: Spontaneous
  Country: US (occurrence: US)
  Receive Date: 20130816
  Receipt Date: 20130816
  Transmission Date: 20140515
  Serious: Yes (Death, Hospitalization)
  Sender: FDA-Public Use
  Company Number: PHHY2013US087088

PATIENT
  Age: 64 Year
  Sex: Male

DRUGS (2)
  1. HEPARIN [Suspect]
     Dosage: 8000 UNITS
     Route: 040
  2. ENOXAPARIN SODIUM [Suspect]
     Dosage: 30 MG, Q12H
     Route: 058

REACTIONS (13)
  - Heparin-induced thrombocytopenia [Fatal]
  - Anaphylactoid reaction [Fatal]
  - Rash erythematous [Fatal]
  - Oedema [Fatal]
  - Dyspnoea [Fatal]
  - Flushing [Fatal]
  - Hypotension [Fatal]
  - Ventricular tachycardia [Unknown]
  - Cardiac arrest [Unknown]
  - Bundle branch block right [Unknown]
  - Brain injury [Unknown]
  - Coronary artery occlusion [Unknown]
  - Pulmonary embolism [Unknown]
